FAERS Safety Report 24155744 (Version 1)
Quarter: 2024Q3

REPORT INFORMATION
  Report Type: Spontaneous
  Country: CN (occurrence: CN)
  Receive Date: 20240731
  Receipt Date: 20240731
  Transmission Date: 20241016
  Serious: Yes (Other)
  Sender: JOHNSON AND JOHNSON
  Company Number: CN-JNJFOC-20240771861

PATIENT
  Age: 13 Year
  Sex: Male
  Weight: 46 kg

DRUGS (2)
  1. CHILDRENS MOTRIN [Suspect]
     Active Substance: IBUPROFEN
     Indication: Viral upper respiratory tract infection
     Route: 048
     Dates: start: 20240718, end: 20240718
  2. HERBALS\HOUTTUYNIA CORDATA WHOLE [Suspect]
     Active Substance: HERBALS\HOUTTUYNIA CORDATA WHOLE
     Indication: Viral upper respiratory tract infection
     Route: 048
     Dates: start: 20240718, end: 20240718

REACTIONS (6)
  - Off label use [Unknown]
  - Joint swelling [Recovering/Resolving]
  - Auricular swelling [Recovering/Resolving]
  - Lip swelling [Recovered/Resolved]
  - Rash [Recovering/Resolving]
  - Pruritus [Recovering/Resolving]

NARRATIVE: CASE EVENT DATE: 20240718
